FAERS Safety Report 7505844-5 (Version None)
Quarter: 2011Q2

REPORT INFORMATION
  Report Type: 
  Country: None (occurrence: None)
  Receive Date: 20110526
  Receipt Date: 20110516
  Transmission Date: 20111010
  Serious: Yes (Other)
  Sender: FDA-Public Use
  Company Number: US-ELI_LILLY_AND_COMPANY-US201105005133

PATIENT
  Age: 57 Year
  Sex: Male
  Weight: 136.5 kg

DRUGS (3)
  1. HUMULIN R [Suspect]
     Dosage: UNK, OTHER
  2. HUMALOG [Suspect]
     Indication: DIABETES MELLITUS
     Dosage: UNK, OTHER
     Dates: start: 20040101, end: 20090101
  3. HUMULIN R [Suspect]
     Indication: DIABETES MELLITUS
     Dosage: UNK, OTHER
     Dates: start: 20090101

REACTIONS (9)
  - WEIGHT INCREASED [None]
  - TACHYCARDIA [None]
  - GLYCOSYLATED HAEMOGLOBIN INCREASED [None]
  - BLOOD GLUCOSE INCREASED [None]
  - ARTHRITIS [None]
  - DRUG INEFFECTIVE [None]
  - EXERCISE TOLERANCE DECREASED [None]
  - BLOOD GLUCOSE DECREASED [None]
  - CHOLECYSTECTOMY [None]
